FAERS Safety Report 8053244-4 (Version None)
Quarter: 2012Q1

REPORT INFORMATION
  Report Type: 
  Country: None (occurrence: None)
  Receive Date: 20120118
  Receipt Date: 20120117
  Transmission Date: 20120608
  Serious: Yes (Hospitalization)
  Sender: FDA-Public Use
  Company Number: ES-ROCHE-767437

PATIENT
  Age: 79 Year
  Sex: Female

DRUGS (6)
  1. ACETAMINOPHEN [Concomitant]
     Indication: PAIN
  2. NEULASTA [Suspect]
     Indication: PROPHYLAXIS
     Route: 058
  3. GRANISETRON HCL [Suspect]
     Indication: VOMITING
     Dosage: AMPOULES 1 MG/1ML, DRUG REPORTED AS GRANISETRON
     Route: 042
     Dates: start: 20101018, end: 20101022
  4. DEXAMETHASONE [Suspect]
     Indication: LUNG NEOPLASM MALIGNANT
     Route: 042
     Dates: start: 20101018, end: 20101022
  5. TOPOTECAN HYDROCHLORIDE [Suspect]
     Indication: LUNG NEOPLASM MALIGNANT
     Route: 042
     Dates: start: 20101018, end: 20101022
  6. OMEPRAZOLE [Concomitant]
     Indication: PROPHYLAXIS

REACTIONS (1)
  - HEPATITIS CHOLESTATIC [None]
